FAERS Safety Report 17851335 (Version 1)
Quarter: 2020Q2

REPORT INFORMATION
  Report Type: Spontaneous
  Country: US (occurrence: US)
  Receive Date: 20200602
  Receipt Date: 20200602
  Transmission Date: 20200714
  Serious: Yes (Hospitalization)
  Sender: FDA-Public Use
  Company Number: US-MAYNE PHARMA-2020MYN000278

PATIENT

DRUGS (1)
  1. CLOZAPINE. [Suspect]
     Active Substance: CLOZAPINE
     Indication: PRODUCT USED FOR UNKNOWN INDICATION
     Dosage: 100 MG QAM, 150 MG QPM

REACTIONS (3)
  - Delusional disorder, unspecified type [Unknown]
  - Schizoaffective disorder [Unknown]
  - Aggression [Unknown]

NARRATIVE: CASE EVENT DATE: 20200522
